FAERS Safety Report 19159250 (Version 2)
Quarter: 2021Q2

REPORT INFORMATION
  Report Type: Spontaneous
  Country: US (occurrence: US)
  Receive Date: 20210420
  Receipt Date: 20210505
  Transmission Date: 20210717
  Serious: Yes (Other)
  Sender: FDA-Public Use
  Company Number: US-EXELA PHARMA SCIENCES, LLC-2021EXL00010

PATIENT

DRUGS (2)
  1. GLYCO [GLYCOPYRROLATE] [Suspect]
     Active Substance: GLYCOPYRROLATE
     Indication: ANAESTHESIA REVERSAL
     Dosage: UNK
     Dates: start: 2021, end: 2021
  2. BLOXIVERZ [Suspect]
     Active Substance: NEOSTIGMINE METHYLSULFATE
     Indication: ANAESTHESIA REVERSAL
     Dosage: UNK
     Dates: start: 2021, end: 2021

REACTIONS (4)
  - Asthenia [Recovered/Resolved]
  - Tetany [Recovered/Resolved]
  - Dyspnoea [Recovered/Resolved]
  - Therapeutic product effect incomplete [Recovered/Resolved]

NARRATIVE: CASE EVENT DATE: 2021
